FAERS Safety Report 4565611-1 (Version None)
Quarter: 2005Q1

REPORT INFORMATION
  Report Type: 
  Country: None (occurrence: None)
  Receive Date: 20050126
  Receipt Date: 20050110
  Transmission Date: 20050727
  Serious: Yes (Hospitalization, Other)
  Sender: FDA-Public Use
  Company Number: USA050187889

PATIENT
  Age: 32 Year
  Sex: Male
  Weight: 116 kg

DRUGS (4)
  1. HUMALOG [Suspect]
     Dates: start: 19960101
  2. HUMULIN N [Suspect]
     Dates: start: 19810101
  3. HUMULIN R [Suspect]
  4. LANTUS [Concomitant]

REACTIONS (5)
  - BLINDNESS UNILATERAL [None]
  - KIDNEY TRANSPLANT REJECTION [None]
  - RENAL TRANSPLANT [None]
  - VISUAL ACUITY REDUCED [None]
  - WEIGHT INCREASED [None]
